FAERS Safety Report 13586690 (Version 1)
Quarter: 2017Q2

REPORT INFORMATION
  Report Type: Spontaneous
  Country: IT (occurrence: IT)
  Receive Date: 20170526
  Receipt Date: 20170526
  Transmission Date: 20170830
  Serious: Yes (Other)
  Sender: FDA-Public Use
  Company Number: IT-TEVA-772993USA

PATIENT
  Age: 40 Year
  Sex: Female

DRUGS (2)
  1. GALZIN [Suspect]
     Active Substance: ZINC ACETATE
     Indication: HEPATO-LENTICULAR DEGENERATION
     Route: 065
     Dates: start: 2015
  2. D-PENICILLAMINE [Concomitant]
     Active Substance: PENICILLAMINE

REACTIONS (3)
  - Asthenia [Unknown]
  - Condition aggravated [Unknown]
  - Dysentery [Unknown]

NARRATIVE: CASE EVENT DATE: 2015
